FAERS Safety Report 21158059 (Version 1)
Quarter: 2022Q3

REPORT INFORMATION
  Report Type: Spontaneous
  Country: US (occurrence: None)
  Receive Date: 20220801
  Receipt Date: 20220801
  Transmission Date: 20221026
  Serious: Yes (Hospitalization)
  Sender: FDA-Public Use
  Company Number: None

PATIENT
  Age: 26 Year
  Sex: Female
  Weight: 63 kg

DRUGS (1)
  1. .DELTA.8-TETRAHYDROCANNABINOL\HERBALS [Suspect]
     Active Substance: .DELTA.8-TETRAHYDROCANNABINOL\HERBALS
     Indication: Feeling of relaxation
     Dosage: OTHER FREQUENCY : TOOK 2 / 1 TIME;?
     Route: 048
     Dates: start: 20220730

REACTIONS (4)
  - Euphoric mood [None]
  - Seizure [None]
  - Vomiting [None]
  - Hypokinesia [None]

NARRATIVE: CASE EVENT DATE: 20220730
